FAERS Safety Report 4721593-0 (Version None)
Quarter: 2005Q3

REPORT INFORMATION
  Report Type: 
  Country: None (occurrence: None)
  Receive Date: 20050721
  Receipt Date: 20041217
  Transmission Date: 20060218
  Serious: No
  Sender: FDA-Public Use
  Company Number: US-BRISTOL-MYERS SQUIBB COMPANY-12799714

PATIENT
  Age: 64 Year
  Sex: Male
  Weight: 113 kg

DRUGS (9)
  1. COUMADIN [Suspect]
     Indication: AORTIC VALVE REPLACEMENT
     Dosage: 2.5 MG MONDAY THROUGH SATURDAY AND 1/2 OF A 2.5 MG TABLET ON SUNDAY
     Route: 048
     Dates: start: 19950802
  2. PACERONE [Suspect]
     Dates: start: 20041101
  3. ALLOPURINOL [Concomitant]
  4. COREG [Concomitant]
  5. LANOXIN [Concomitant]
  6. LASIX [Concomitant]
  7. PREVACID [Concomitant]
  8. SPIRONOLACTONE [Concomitant]
  9. VENOFER [Concomitant]

REACTIONS (1)
  - CHILLS [None]
